FAERS Safety Report 19906263 (Version 3)
Quarter: 2021Q4

REPORT INFORMATION
  Report Type: Report from Study
  Country: US (occurrence: None)
  Receive Date: 20211001
  Receipt Date: 20211122
  Transmission Date: 20220303
  Serious: Yes (Death, Hospitalization)
  Sender: FDA-Public Use
  Company Number: US-EISAI MEDICAL RESEARCH-EC-2021-100585

PATIENT
  Age: 49 Year
  Sex: Female
  Weight: 58.9 kg

DRUGS (9)
  1. LENVATINIB [Suspect]
     Active Substance: LENVATINIB
     Indication: Metastases to meninges
     Route: 048
     Dates: start: 20210913, end: 20210916
  2. PEMBROLIZUMAB [Suspect]
     Active Substance: PEMBROLIZUMAB
     Indication: Metastases to meninges
     Route: 041
     Dates: start: 20210913, end: 20210913
  3. OXYCODONE [Concomitant]
     Active Substance: OXYCODONE
  4. PRINIVIL [Concomitant]
     Active Substance: LISINOPRIL
  5. VENLAFAXINE [Concomitant]
     Active Substance: VENLAFAXINE HYDROCHLORIDE
  6. BACTRIM [Concomitant]
     Active Substance: SULFAMETHOXAZOLE\TRIMETHOPRIM
  7. LORAZEPAM [Concomitant]
     Active Substance: LORAZEPAM
  8. DECADRON [Concomitant]
     Active Substance: DEXAMETHASONE
  9. APIXABAN [Concomitant]
     Active Substance: APIXABAN

REACTIONS (2)
  - Malignant neoplasm progression [Fatal]
  - Abdominal pain [Unknown]

NARRATIVE: CASE EVENT DATE: 20210916
